FAERS Safety Report 9977038 (Version 1)
Quarter: 2014Q1

REPORT INFORMATION
  Report Type: Report from Study
  Country: US (occurrence: US)
  Receive Date: 20140306
  Receipt Date: 20140306
  Transmission Date: 20141002
  Serious: No
  Sender: FDA-Public Use
  Company Number: US-ABBVIE-13P-163-1164482-00

PATIENT
  Age: 51 Year
  Sex: Male
  Weight: 77.18 kg

DRUGS (17)
  1. HUMIRA [Suspect]
     Indication: CROHN^S DISEASE
     Route: 058
     Dates: start: 20131009, end: 20131009
  2. HUMIRA [Suspect]
     Indication: COLITIS ULCERATIVE
     Route: 058
     Dates: start: 20131023, end: 20131023
  3. HUMIRA [Suspect]
  4. SULFASALAZINE [Concomitant]
     Indication: CROHN^S DISEASE
  5. TRAMADOL [Concomitant]
     Indication: PAIN
  6. TIZANIDINE [Concomitant]
     Indication: PRODUCT USED FOR UNKNOWN INDICATION
  7. CLONAZEPAM [Concomitant]
     Indication: PRODUCT USED FOR UNKNOWN INDICATION
  8. FOLIC ACID [Concomitant]
     Indication: PRODUCT USED FOR UNKNOWN INDICATION
  9. POTASSIUM [Concomitant]
     Indication: PRODUCT USED FOR UNKNOWN INDICATION
  10. ANASTROZOLE [Concomitant]
     Indication: PRODUCT USED FOR UNKNOWN INDICATION
  11. DEXILANT [Concomitant]
     Indication: HYPERCHLORHYDRIA
  12. PRAZOSIN [Concomitant]
     Indication: SLEEP DISORDER THERAPY
     Dosage: 1MG AT BEDTIME
  13. CYMBALTA [Concomitant]
     Indication: DEPRESSION
  14. LUNESTA [Concomitant]
     Indication: INSOMNIA
     Dosage: AT BEDTIME AS NEEDED
  15. HYDROMORPHONE [Concomitant]
     Indication: PAIN
     Dosage: 4MG EVERY 4-6 HOURS
  16. TESTOSTERONE [Concomitant]
     Indication: PRODUCT USED FOR UNKNOWN INDICATION
  17. FENTANYL [Concomitant]
     Indication: PAIN
     Dosage: 75MG PATCH CHANGE EVERY 2 DAYS

REACTIONS (5)
  - Abasia [Recovered/Resolved]
  - Muscular weakness [Recovered/Resolved]
  - Hypoaesthesia [Recovered/Resolved]
  - Pain in extremity [Recovered/Resolved]
  - Injection site pain [Recovered/Resolved]
